FAERS Safety Report 12205753 (Version 1)
Quarter: 2016Q1

REPORT INFORMATION
  Report Type: Spontaneous
  Country: GB (occurrence: GB)
  Receive Date: 20160323
  Receipt Date: 20160323
  Transmission Date: 20160526
  Serious: Yes (Hospitalization, Other)
  Sender: FDA-Public Use
  Company Number: GB-MYLANLABS-2016M1012074

PATIENT

DRUGS (2)
  1. BACLOFEN. [Suspect]
     Active Substance: BACLOFEN
     Dosage: 460 MICROGRAMS PER 24 HOURS
     Route: 037
  2. BACLOFEN. [Suspect]
     Active Substance: BACLOFEN
     Indication: MUSCLE SPASTICITY
     Dosage: 60 MICROGRAMS PER 24 HOURS
     Route: 037

REACTIONS (3)
  - Spinal pain [Recovered/Resolved]
  - Scoliosis [Recovered/Resolved]
  - Prescribed overdose [Recovered/Resolved]
